FAERS Safety Report 11503762 (Version 2)
Quarter: 2015Q4

REPORT INFORMATION
  Report Type: Other
  Country: MX (occurrence: MX)
  Receive Date: 20150914
  Receipt Date: 20151015
  Transmission Date: 20160304
  Serious: Yes (Hospitalization)
  Sender: FDA-Public Use
  Company Number: MX-SHIRE-MX201511439

PATIENT
  Age: 5 Year
  Sex: Male
  Weight: 19.5 kg

DRUGS (13)
  1. CLOROTRIMETON [Concomitant]
     Indication: PREMEDICATION
     Dosage: UNK, UNKNOWN
     Route: 065
     Dates: start: 20150828, end: 20150904
  2. HYDROCORTISONE. [Concomitant]
     Active Substance: HYDROCORTISONE
     Indication: PREMEDICATION
     Dosage: UNK, UNKNOWN
     Route: 065
  3. DEXAMETHASONE. [Concomitant]
     Active Substance: DEXAMETHASONE
     Indication: INFUSION RELATED REACTION
  4. HYDROCORTISONE. [Concomitant]
     Active Substance: HYDROCORTISONE
     Indication: ABDOMINAL PAIN
  5. CLOROTRIMETON [Concomitant]
     Indication: RASH GENERALISED
  6. HYDROCORTISONE. [Concomitant]
     Active Substance: HYDROCORTISONE
     Indication: RASH GENERALISED
  7. DEXAMETHASONE. [Concomitant]
     Active Substance: DEXAMETHASONE
     Indication: RASH GENERALISED
  8. DEXAMETHASONE. [Concomitant]
     Active Substance: DEXAMETHASONE
     Indication: ABDOMINAL PAIN
  9. HYDROCORTISONE. [Concomitant]
     Active Substance: HYDROCORTISONE
     Indication: INFUSION RELATED REACTION
  10. ELAPRASE [Suspect]
     Active Substance: IDURSULFASE
     Indication: MUCOPOLYSACCHARIDOSIS II
     Dosage: 9 MG (1.5 VIALS), OTHER (EVERY 8 DAYS)
     Route: 041
     Dates: start: 20130703
  11. CLOROTRIMETON [Concomitant]
     Indication: INFUSION RELATED REACTION
  12. CLOROTRIMETON [Concomitant]
     Indication: ABDOMINAL PAIN
     Dosage: UNK, UNKNOWN
     Route: 065
  13. DEXAMETHASONE. [Concomitant]
     Active Substance: DEXAMETHASONE
     Indication: PREMEDICATION

REACTIONS (4)
  - Abdominal pain [Recovered/Resolved]
  - Rash generalised [Recovered/Resolved]
  - Headache [Recovered/Resolved]
  - Infusion related reaction [Recovered/Resolved]

NARRATIVE: CASE EVENT DATE: 20150821
